FAERS Safety Report 7481220-9 (Version None)
Quarter: 2011Q2

REPORT INFORMATION
  Report Type: 
  Country: None (occurrence: None)
  Receive Date: 20110512
  Receipt Date: 20110512
  Transmission Date: 20111010
  Serious: Yes (Congenital Anomaly)
  Sender: FDA-Public Use
  Company Number: None

PATIENT
  Sex: Male
  Weight: 15.8759 kg

DRUGS (2)
  1. AMOXICILLIN [Suspect]
     Indication: LYME DISEASE
     Dosage: 500 MG TID PO
     Route: 048
     Dates: start: 20080328, end: 20080819
  2. VALACYCLOVIR [Concomitant]

REACTIONS (5)
  - CONVULSION [None]
  - MATERNAL DRUGS AFFECTING FOETUS [None]
  - HYPOTONIA [None]
  - DEVELOPMENTAL DELAY [None]
  - ATAXIA [None]
